FAERS Safety Report 6422754-5 (Version None)
Quarter: 2009Q4

REPORT INFORMATION
  Report Type: 
  Country: None (occurrence: None)
  Receive Date: 20091102
  Receipt Date: 20091028
  Transmission Date: 20100525
  Serious: Yes (Hospitalization)
  Sender: FDA-Public Use
  Company Number: US-ASTRAZENECA-2009SE23154

PATIENT
  Age: 69 Year
  Sex: Female
  Weight: 103.9 kg

DRUGS (17)
  1. SYMBICORT [Suspect]
     Indication: BRONCHITIS
     Dosage: 640 MCG BID
     Route: 055
     Dates: start: 20090910
  2. CIPRO [Concomitant]
  3. OMEPRAZOLE [Concomitant]
  4. DIGOXIN [Concomitant]
  5. POTASSIUM CHLORIDE [Concomitant]
  6. LASIX [Concomitant]
  7. CLONAZAPINE [Concomitant]
  8. ATENOLOL [Concomitant]
  9. MAGOXIDE [Concomitant]
  10. DICLOFENAC [Concomitant]
  11. BENVONATATE [Concomitant]
  12. CALTRATE [Concomitant]
  13. GELNIQUE GEL [Concomitant]
  14. NITROGLYCERIN [Concomitant]
  15. ASPIRIN [Concomitant]
  16. LIPITOR [Concomitant]
  17. BYSTOLIC [Concomitant]

REACTIONS (3)
  - CHRONIC OBSTRUCTIVE PULMONARY DISEASE [None]
  - CYSTITIS [None]
  - WEIGHT INCREASED [None]
